FAERS Safety Report 9417170 (Version 1)
Quarter: 2013Q3

REPORT INFORMATION
  Report Type: Spontaneous
  Country: CO (occurrence: CO)
  Receive Date: 20130724
  Receipt Date: 20130724
  Transmission Date: 20140515
  Serious: Yes (Hospitalization, Other)
  Sender: FDA-Public Use
  Company Number: CO-MERCK-1307COL011881

PATIENT
  Age: 58 Year
  Sex: Female

DRUGS (6)
  1. REBETOL [Suspect]
     Indication: HEPATITIS C
     Dosage: 1000 MG, DAILY
     Route: 048
     Dates: start: 20130426, end: 20130711
  2. REBETOL [Suspect]
     Dosage: 1000 MG, DAILY
     Route: 048
     Dates: start: 20130713
  3. PEG-INTRON [Suspect]
     Indication: HEPATITIS C
     Dosage: REDIPEN (PREFILLED PENS), 100 MICROGRAM, WEEKLY
     Route: 058
     Dates: start: 20130426, end: 20130711
  4. PEG-INTRON [Suspect]
     Dosage: REDIPEN (PREFILLED PENS), 100 MICROGRAM, WEEKLY
     Route: 058
  5. VICTRELIS [Suspect]
     Indication: HEPATITIS C
     Dosage: 2400 MG DAILY
     Route: 048
     Dates: start: 20130426, end: 20130711
  6. VICTRELIS [Suspect]
     Dosage: 1800 MG DAILY
     Route: 048
     Dates: start: 20130713

REACTIONS (11)
  - Pancytopenia [Recovered/Resolved]
  - Anaemia [Recovered/Resolved]
  - Neutropenia [Recovered/Resolved]
  - Asthenia [Recovered/Resolved]
  - Decreased appetite [Recovered/Resolved]
  - Insomnia [Recovered/Resolved]
  - Dry mouth [Recovered/Resolved]
  - Dehydration [Recovered/Resolved]
  - Dry skin [Recovered/Resolved]
  - Mucosal dryness [Recovered/Resolved]
  - Weight decreased [Recovered/Resolved]
